FAERS Safety Report 6933006-9 (Version None)
Quarter: 2010Q3

REPORT INFORMATION
  Report Type: 
  Country: None (occurrence: None)
  Receive Date: 20100818
  Receipt Date: 20100818
  Transmission Date: 20110219
  Serious: Yes (Other)
  Sender: FDA-Public Use
  Company Number: None

PATIENT
  Sex: Male

DRUGS (2)
  1. ACYCLOVIR [Suspect]
     Indication: ANTIVIRAL PROPHYLAXIS
     Dosage: 800 MG 3 X DAILY PO
     Route: 048
     Dates: start: 20100517, end: 20100622
  2. ACYCLOVIR [Suspect]
     Indication: GENITAL HERPES
     Dosage: 800 MG 3 X DAILY PO
     Route: 048
     Dates: start: 20100517, end: 20100622

REACTIONS (4)
  - CONDITION AGGRAVATED [None]
  - DRUG INEFFECTIVE [None]
  - GENITAL HERPES [None]
  - PRODUCT SUBSTITUTION ISSUE [None]
